FAERS Safety Report 7406933-6 (Version None)
Quarter: 2011Q2

REPORT INFORMATION
  Report Type: 
  Country: None (occurrence: None)
  Receive Date: 20110406
  Receipt Date: 20110406
  Transmission Date: 20111010
  Serious: Yes (Hospitalization)
  Sender: FDA-Public Use
  Company Number: None

PATIENT
  Age: 67 Year
  Sex: Female
  Weight: 81.6475 kg

DRUGS (1)
  1. REMICADE [Suspect]
     Indication: PSORIATIC ARTHROPATHY
     Dosage: 3RD DOSE IV
     Route: 042
     Dates: start: 20101101, end: 20101201

REACTIONS (9)
  - PALPITATIONS [None]
  - MUSCLE SPASMS [None]
  - UPPER RESPIRATORY TRACT INFECTION [None]
  - APHASIA [None]
  - COUGH [None]
  - INFUSION RELATED REACTION [None]
  - PAIN IN EXTREMITY [None]
  - CHEST DISCOMFORT [None]
  - PYREXIA [None]
